FAERS Safety Report 23167497 (Version 1)
Quarter: 2023Q4

REPORT INFORMATION
  Report Type: Spontaneous
  Country: US (occurrence: US)
  Receive Date: 20231109
  Receipt Date: 20231109
  Transmission Date: 20240110
  Serious: No
  Sender: FDA-Public Use
  Company Number: US-SA-SAC20231102000817

PATIENT
  Age: 54 Year
  Sex: Male

DRUGS (1)
  1. DUPIXENT [Suspect]
     Active Substance: DUPILUMAB
     Indication: Asthma
     Dosage: 600 MG, 1X
     Route: 058
     Dates: start: 20231025, end: 20231025

REACTIONS (4)
  - Injection site discomfort [Unknown]
  - Faeces soft [Unknown]
  - Dizziness [Unknown]
  - Dry eye [Unknown]

NARRATIVE: CASE EVENT DATE: 20231001
